FAERS Safety Report 19168646 (Version 1)
Quarter: 2021Q2

REPORT INFORMATION
  Report Type: Spontaneous
  Country: US (occurrence: US)
  Receive Date: 20210422
  Receipt Date: 20210422
  Transmission Date: 20210717
  Serious: Yes (Life-Threatening, Hospitalization)
  Sender: FDA-Public Use
  Company Number: US-MYLANLABS-2021M1023340

PATIENT
  Age: 2 Week
  Sex: Female
  Weight: .85 kg

DRUGS (3)
  1. ROCURONIUM [Suspect]
     Active Substance: ROCURONIUM BROMIDE
     Indication: NEUROMUSCULAR BLOCKING THERAPY
     Dosage: 1.2 MILLIGRAM/KILOGRAM, TOTAL
     Route: 065
  2. ATROPINE. [Concomitant]
     Active Substance: ATROPINE
     Indication: PREMEDICATION
     Dosage: 0.02 MILLIGRAM/KILOGRAM, TOTAL
     Route: 065
  3. PROPOFOL. [Concomitant]
     Active Substance: PROPOFOL
     Indication: ANAESTHESIA
     Dosage: 2 MILLIGRAM/KILOGRAM, TOTAL
     Route: 065

REACTIONS (5)
  - Neuromuscular blockade [Recovered/Resolved]
  - Tracheomalacia [Unknown]
  - Neonatal hypoxia [Recovered/Resolved]
  - Hypoxia [Recovered/Resolved]
  - Bradycardia neonatal [Recovered/Resolved]
